FAERS Safety Report 9846232 (Version 1)
Quarter: 2014Q1

REPORT INFORMATION
  Report Type: Spontaneous
  Country: US (occurrence: None)
  Receive Date: 20140117
  Receipt Date: 20140117
  Transmission Date: 20141002
  Serious: Yes (Hospitalization)
  Sender: FDA-Public Use
  Company Number: AUR-APL-2014-00281

PATIENT
  Age: 50 Year
  Sex: Female
  Weight: 108.8 kg

DRUGS (8)
  1. ATENOLOL [Suspect]
     Indication: PANIC ATTACK
     Dosage: (25 MG, 1 D), ORAL
     Route: 048
     Dates: start: 2000
  2. LISINOPRIL [Suspect]
     Indication: BLOOD PRESSURE ABNORMAL
     Dosage: (10 MG, 1 D), ORAL
     Route: 048
     Dates: start: 2008
  3. NEXIUM (ESOMEPRAZOLE MAGNESIUM) [Suspect]
     Indication: GASTROOESOPHAGEAL REFLUX DISEASE
     Dosage: (40 MG, 1 D), ORAL
     Route: 048
     Dates: start: 2011, end: 20131222
  4. ASPIRIN (ACETYLSALICYLIC ACID) [Concomitant]
  5. COUMADINE (WARFARIN SODIUM) [Concomitant]
  6. HYDROCODONE (HYDROCODONE) [Concomitant]
  7. HYDROCHLOROTHIAZIDE (HYDROCHLOROTHIAZIDE) [Concomitant]
  8. BUSPIRONE (BUSPIRONE) [Concomitant]

REACTIONS (3)
  - Drug dose omission [None]
  - Gastrooesophageal reflux disease [None]
  - Antiphospholipid antibodies [None]
